FAERS Safety Report 16178746 (Version 1)
Quarter: 2019Q2

REPORT INFORMATION
  Report Type: Spontaneous
  Country: US (occurrence: US)
  Receive Date: 20190410
  Receipt Date: 20190410
  Transmission Date: 20190711
  Serious: Yes (Other)
  Sender: FDA-Public Use
  Company Number: US-MYLANLABS-2019M1028772

PATIENT
  Sex: Female

DRUGS (3)
  1. LEUCOVORIN CALCIUM FOR INJECTION [Suspect]
     Active Substance: LEUCOVORIN CALCIUM
     Dosage: 720 MILLIGRAM
     Route: 042
     Dates: start: 20190319
  2. OXALIPLATIN. [Suspect]
     Active Substance: OXALIPLATIN
     Indication: CHEMOTHERAPY
     Dosage: UNK
     Route: 042
  3. LEUCOVORIN CALCIUM FOR INJECTION [Suspect]
     Active Substance: LEUCOVORIN CALCIUM
     Indication: CHEMOTHERAPY
     Dosage: UNK

REACTIONS (3)
  - Dyspnoea [Recovering/Resolving]
  - Hypoaesthesia [Unknown]
  - Anaphylactic reaction [Recovering/Resolving]

NARRATIVE: CASE EVENT DATE: 20190312
